FAERS Safety Report 7465101-2 (Version None)
Quarter: 2011Q2

REPORT INFORMATION
  Report Type: 
  Country: None (occurrence: None)
  Receive Date: 20110509
  Receipt Date: 20110502
  Transmission Date: 20111010
  Serious: Yes (Other)
  Sender: FDA-Public Use
  Company Number: GB-PFIZER INC-2010073942

PATIENT
  Age: 85 Year
  Sex: Female

DRUGS (2)
  1. ZYVOX [Suspect]
     Indication: GRAFT INFECTION
     Dosage: 600 MG, 2X/DAY
  2. INVANZ [Suspect]
     Route: 042

REACTIONS (4)
  - HALLUCINATION [None]
  - SUICIDAL IDEATION [None]
  - DIZZINESS [None]
  - NAUSEA [None]
